FAERS Safety Report 21440386 (Version 1)
Quarter: 2022Q4

REPORT INFORMATION
  Report Type: Spontaneous
  Country: US (occurrence: US)
  Receive Date: 20221011
  Receipt Date: 20221011
  Transmission Date: 20230113
  Serious: Yes (Other)
  Sender: FDA-Public Use
  Company Number: US-AMNEAL PHARMACEUTICALS-2022-AMRX-02702

PATIENT
  Age: 53 Year
  Sex: Male

DRUGS (1)
  1. LIORESAL [Suspect]
     Active Substance: BACLOFEN
     Indication: Quadriplegia
     Dosage: 550 ?G, \DAY
     Route: 037

REACTIONS (4)
  - Implant site erosion [Recovered/Resolved]
  - Therapeutic product effect variable [Recovered/Resolved]
  - Device kink [Recovered/Resolved]
  - Device leakage [Recovered/Resolved]

NARRATIVE: CASE EVENT DATE: 20210301
